FAERS Safety Report 5715381-6 (Version None)
Quarter: 2008Q2

REPORT INFORMATION
  Report Type: 
  Country: None (occurrence: None)
  Receive Date: 20080423
  Receipt Date: 20080414
  Transmission Date: 20081010
  Serious: Yes (Hospitalization)
  Sender: FDA-Public Use
  Company Number: FR-PFIZER INC-2008033268

PATIENT
  Sex: Female

DRUGS (10)
  1. TRIFLUCAN [Suspect]
     Indication: FUNGAL INFECTION
     Route: 048
     Dates: start: 20071010, end: 20071015
  2. ALDACTAZIDE [Suspect]
     Dosage: TEXT:0.5 DF DAILY EVERY DAY TDD:0.5 DF
     Route: 048
  3. DIOSMECTITE [Concomitant]
  4. TIORFAN [Concomitant]
  5. ALUMINIUM PHOSPHATE [Concomitant]
  6. CHLORHEXIDINE GLUCONATE [Concomitant]
  7. ZOLPIDEM TARTRATE [Concomitant]
  8. PARACETAMOL [Concomitant]
  9. CALTRATE + D [Concomitant]
  10. RENUTRYL 500 [Concomitant]

REACTIONS (3)
  - HYPOCHLORAEMIA [None]
  - HYPOKALAEMIA [None]
  - HYPONATRAEMIA [None]
